FAERS Safety Report 19940121 (Version 1)
Quarter: 2021Q4

REPORT INFORMATION
  Report Type: Spontaneous
  Country: US (occurrence: US)
  Receive Date: 20211012
  Receipt Date: 20211012
  Transmission Date: 20220303
  Serious: No
  Sender: FDA-Public Use
  Company Number: US-SA-SAC20211006000850

PATIENT
  Age: 10 Year
  Sex: Female

DRUGS (2)
  1. DUPIXENT [Suspect]
     Active Substance: DUPILUMAB
     Indication: Dermatitis atopic
     Dosage: 200 MG, QOW
     Route: 058
  2. DUPIXENT [Suspect]
     Active Substance: DUPILUMAB
     Dosage: UNK
     Dates: start: 20210921

REACTIONS (7)
  - Dermatitis atopic [Unknown]
  - Rash macular [Unknown]
  - Pruritus [Unknown]
  - Eyelid skin dryness [Unknown]
  - Eyelid exfoliation [Unknown]
  - Product dose omission issue [Unknown]
  - Product use issue [Unknown]
